FAERS Safety Report 18479599 (Version 1)
Quarter: 2020Q4

REPORT INFORMATION
  Report Type: Spontaneous
  Country: US (occurrence: US)
  Receive Date: 20201107
  Receipt Date: 20201107
  Transmission Date: 20210114
  Serious: Yes (Other)
  Sender: FDA-Public Use
  Company Number: None

PATIENT
  Age: 58 Year
  Sex: Female
  Weight: 70.2 kg

DRUGS (8)
  1. CLARITIN [Concomitant]
     Active Substance: LORATADINE
  2. SYNTHROID [Concomitant]
     Active Substance: LEVOTHYROXINE SODIUM
  3. LAMICTAL [Concomitant]
     Active Substance: LAMOTRIGINE
  4. VITAMIN D [Concomitant]
     Active Substance: VITAMIN D NOS
  5. ODACTRA [Suspect]
     Active Substance: DERMATOPHAGOIDES FARINAE\DERMATOPHAGOIDES PTERONYSSINUS
     Indication: DUST ALLERGY
     Dosage: ?          OTHER STRENGTH:12 SQ-HDM;QUANTITY:1 TABLET(S);?
     Route: 060
     Dates: start: 20200920, end: 20201017
  6. ESTRADIOL. [Concomitant]
     Active Substance: ESTRADIOL
  7. PROGESTERONE. [Concomitant]
     Active Substance: PROGESTERONE
  8. MONTELUKAST [Concomitant]
     Active Substance: MONTELUKAST SODIUM

REACTIONS (1)
  - Oesophagitis [None]

NARRATIVE: CASE EVENT DATE: 20201016
